FAERS Safety Report 17285899 (Version 5)
Quarter: 2020Q2

REPORT INFORMATION
  Report Type: Spontaneous
  Country: DE (occurrence: DE)
  Receive Date: 20200118
  Receipt Date: 20200624
  Transmission Date: 20200713
  Serious: Yes (Hospitalization, Other)
  Sender: FDA-Public Use
  Company Number: DE-HETERO-HET2020DE00041

PATIENT
  Age: 22 Year
  Sex: Female
  Weight: 77 kg

DRUGS (6)
  1. BRIVARACETAM [Concomitant]
     Active Substance: BRIVARACETAM
     Indication: SEIZURE
     Dosage: 25 MG, QD
     Route: 048
     Dates: start: 20200121
  2. LEVETIRACETAM. [Suspect]
     Active Substance: LEVETIRACETAM
     Dosage: UNK
     Route: 065
     Dates: start: 20191229
  3. LEVETIRACETAM. [Suspect]
     Active Substance: LEVETIRACETAM
     Dosage: UNK
     Route: 065
     Dates: start: 20191220
  4. LEVETIRACETAM. [Suspect]
     Active Substance: LEVETIRACETAM
     Indication: EPILEPSY
     Dosage: 25 MG
     Route: 065
     Dates: start: 20191220, end: 20191229
  5. INTERFERONUM BETA-1A ADNR [Suspect]
     Active Substance: INTERFERON BETA-1A
     Indication: MULTIPLE SCLEROSIS
     Dosage: 30 MICROGRAM
     Route: 030
     Dates: start: 20170621, end: 20191229
  6. GILENYA [Suspect]
     Active Substance: FINGOLIMOD HYDROCHLORIDE
     Indication: MULTIPLE SCLEROSIS
     Dosage: UNK
     Route: 048
     Dates: start: 20170621

REACTIONS (4)
  - Multiple sclerosis [Not Recovered/Not Resolved]
  - Pain in extremity [Recovered/Resolved]
  - Multiple sclerosis relapse [Recovered/Resolved]
  - Dizziness [Recovered/Resolved]

NARRATIVE: CASE EVENT DATE: 20191226
